FAERS Safety Report 8143135-2 (Version None)
Quarter: 2012Q1

REPORT INFORMATION
  Report Type: 
  Country: None (occurrence: None)
  Receive Date: 20120217
  Receipt Date: 20120213
  Transmission Date: 20120608
  Serious: No
  Sender: FDA-Public Use
  Company Number: US-PFIZER INC-2012014861

PATIENT
  Sex: Male
  Weight: 90.7 kg

DRUGS (6)
  1. HYDROCHLOROTHIAZIDE [Concomitant]
     Dosage: UNK
  2. ACETYLSALICYLIC ACID [Concomitant]
     Dosage: UNK
  3. CHANTIX [Suspect]
     Dosage: UNK
     Route: 048
  4. SIMVASTATIN [Concomitant]
     Dosage: 20 MG, UNK
  5. CHANTIX [Suspect]
     Indication: SMOKING CESSATION THERAPY
     Dosage: 0.5 MG, 1X/DAY
     Route: 048
     Dates: start: 20111216
  6. PRILOSEC [Concomitant]
     Indication: GASTROOESOPHAGEAL REFLUX DISEASE
     Dosage: UNK MG, UNK

REACTIONS (4)
  - FEELING ABNORMAL [None]
  - ABNORMAL DREAMS [None]
  - SOMNOLENCE [None]
  - FATIGUE [None]
